FAERS Safety Report 5208831-5 (Version None)
Quarter: 2007Q1

REPORT INFORMATION
  Report Type: 
  Country: None (occurrence: None)
  Receive Date: 20070116
  Receipt Date: 20070108
  Transmission Date: 20070707
  Serious: Yes (Hospitalization, Other)
  Sender: FDA-Public Use
  Company Number: DE-BRISTOL-MYERS SQUIBB COMPANY-13394887

PATIENT
  Age: 40 Year
  Sex: Male
  Weight: 96 kg

DRUGS (2)
  1. ABILIFY [Suspect]
     Indication: PSYCHOTIC DISORDER
     Route: 048
     Dates: start: 20041013, end: 20051101
  2. ATOSIL [Suspect]
     Indication: INITIAL INSOMNIA

REACTIONS (7)
  - ANGINA PECTORIS [None]
  - ARRHYTHMIA [None]
  - CONSTIPATION [None]
  - FATIGUE [None]
  - SENSATION OF FOREIGN BODY [None]
  - SLEEP DISORDER [None]
  - TACHYCARDIA [None]
